FAERS Safety Report 22030978 (Version 2)
Quarter: 2023Q1

REPORT INFORMATION
  Report Type: Report from Study
  Country: CN (occurrence: CN)
  Receive Date: 20230223
  Receipt Date: 20230309
  Transmission Date: 20230417
  Serious: Yes (Other)
  Sender: FDA-Public Use
  Company Number: CN-FOSUNKITE-FOSUNKITE-20230154

PATIENT

DRUGS (3)
  1. AXICABTAGENE CILOLEUCEL [Suspect]
     Active Substance: AXICABTAGENE CILOLEUCEL
     Indication: Non-Hodgkin^s lymphoma
     Dosage: 1.3*10^8 CELLS (NUMBER OF CAR-T CELLS)
     Route: 042
     Dates: start: 20220704, end: 20220704
  2. FLUDARABINE [Suspect]
     Active Substance: FLUDARABINE PHOSPHATE
     Indication: Lymphodepletion
     Dosage: 40 MG
     Route: 041
     Dates: start: 20220629, end: 20220701
  3. CYCLOPHOSPHAMIDE [Suspect]
     Active Substance: CYCLOPHOSPHAMIDE
     Indication: Lymphodepletion
     Dosage: 0.8 G
     Route: 041
     Dates: start: 20220629, end: 20220701

REACTIONS (11)
  - Arteriosclerosis coronary artery [Not Recovered/Not Resolved]
  - Cytokine release syndrome [Recovered/Resolved]
  - Hyponatraemia [Recovered/Resolved]
  - Back pain [Not Recovered/Not Resolved]
  - Emphysema [Not Recovered/Not Resolved]
  - Oedema [Not Recovered/Not Resolved]
  - Pleural effusion [Not Recovered/Not Resolved]
  - Arthralgia [Recovered/Resolved]
  - Hypoaesthesia [Recovered/Resolved]
  - Pain in extremity [Recovered/Resolved]
  - Tremor [Recovered/Resolved]

NARRATIVE: CASE EVENT DATE: 20220706
